FAERS Safety Report 23096839 (Version 2)
Quarter: 2024Q1

REPORT INFORMATION
  Report Type: Spontaneous
  Country: US (occurrence: US)
  Receive Date: 20231023
  Receipt Date: 20240105
  Transmission Date: 20240410
  Serious: No
  Sender: FDA-Public Use
  Company Number: US-PFIZER INC-PV202300165721

PATIENT
  Age: 68 Year
  Sex: Female

DRUGS (1)
  1. CIBINQO [Suspect]
     Active Substance: ABROCITINIB
     Dosage: CUT THE PILL IN HALF

REACTIONS (2)
  - Product prescribing issue [Unknown]
  - Wrong technique in product usage process [Unknown]
